FAERS Safety Report 5993984-1 (Version None)
Quarter: 2008Q4

REPORT INFORMATION
  Report Type: 
  Country: None (occurrence: None)
  Receive Date: 20081212
  Receipt Date: 20081202
  Transmission Date: 20090506
  Serious: Yes (Other)
  Sender: FDA-Public Use
  Company Number: BR-PFIZER INC-2008151354

PATIENT

DRUGS (2)
  1. FRONTAL [Suspect]
     Indication: ANXIETY
  2. FRONTAL [Suspect]
     Indication: PANIC DISORDER

REACTIONS (3)
  - BLOOD PRESSURE INCREASED [None]
  - DRUG INEFFECTIVE [None]
  - FEAR [None]
